FAERS Safety Report 15276694 (Version 2)
Quarter: 2018Q3

REPORT INFORMATION
  Report Type: Spontaneous
  Country: HR (occurrence: HR)
  Receive Date: 20180814
  Receipt Date: 20180823
  Transmission Date: 20181010
  Serious: Yes (Other)
  Sender: FDA-Public Use
  Company Number: HR-ASTRAZENECA-2018SF01810

PATIENT
  Age: 53 Year
  Sex: Male

DRUGS (6)
  1. QUETIAPINE FUMARATE. [Suspect]
     Active Substance: QUETIAPINE FUMARATE
     Indication: SCHIZOPHRENIA
     Dosage: 200 MG, 1/2, 1/2, ONE TABLET
     Route: 048
     Dates: end: 201608
  2. QUETIAPINE FUMARATE. [Suspect]
     Active Substance: QUETIAPINE FUMARATE
     Indication: SCHIZOPHRENIA
     Dosage: UNKNOWN
     Route: 048
  3. FLUPHENAZINE [Suspect]
     Active Substance: FLUPHENAZINE
     Indication: SCHIZOPHRENIA
     Dosage: 2.5 MG TABLETS 3X1
     Route: 065
  4. FLUPHENAZINE [Suspect]
     Active Substance: FLUPHENAZINE
     Indication: SCHIZOPHRENIA
     Dosage: UNK
     Route: 065
  5. FLUPHENAZINE [Suspect]
     Active Substance: FLUPHENAZINE
     Indication: SCHIZOPHRENIA
     Route: 065
  6. CLONAZEPAM. [Concomitant]
     Active Substance: CLONAZEPAM
     Indication: SCHIZOPHRENIA
     Route: 051

REACTIONS (1)
  - Drug-induced liver injury [Recovering/Resolving]
